FAERS Safety Report 10102561 (Version 2)
Quarter: 2014Q2

REPORT INFORMATION
  Report Type: Other
  Country: US (occurrence: US)
  Receive Date: 20140424
  Receipt Date: 20140611
  Transmission Date: 20141212
  Serious: Yes (Death, Hospitalization, Other)
  Sender: FDA-Public Use
  Company Number: US-GSKPPD-2014GSK000422

PATIENT
  Age: 60 Year
  Sex: Male
  Weight: 95.34 kg

DRUGS (2)
  1. AVANDIA [Suspect]
     Indication: DIABETES MELLITUS
     Route: 048
     Dates: start: 20020121, end: 20070314
  2. AVANDIA [Suspect]
     Route: 048
     Dates: start: 20020121, end: 20070314

REACTIONS (4)
  - Myocardial infarction [Recovered/Resolved]
  - Cerebrovascular accident [Not Recovered/Not Resolved]
  - Malignant hypertension [Recovered/Resolved]
  - Cardio-respiratory arrest [Fatal]
